FAERS Safety Report 6522862-4 (Version None)
Quarter: 2009Q4

REPORT INFORMATION
  Report Type: 
  Country: None (occurrence: None)
  Receive Date: 20091230
  Receipt Date: 20091221
  Transmission Date: 20100525
  Serious: Yes (Other)
  Sender: FDA-Public Use
  Company Number: HU-ELI_LILLY_AND_COMPANY-HU200912004575

PATIENT
  Age: 79 Year
  Sex: Female

DRUGS (8)
  1. FORTEO [Suspect]
     Indication: OSTEOPOROSIS POSTMENOPAUSAL
     Dosage: 20 UG, DAILY (1/D)
     Route: 058
  2. BETALOC ZOK [Concomitant]
     Indication: CARDIAC DISORDER
  3. CAVINTON [Concomitant]
     Indication: CARDIAC DISORDER
  4. CALCIUM [Concomitant]
     Indication: OSTEOPOROSIS
  5. VITAMIN D [Concomitant]
     Indication: OSTEOPOROSIS
  6. METHOTREXATE [Concomitant]
     Indication: OSTEOARTHRITIS
  7. CORTICOSTEROIDS [Concomitant]
     Indication: OSTEOARTHRITIS
  8. ANTIHYPERTENSIVES [Concomitant]

REACTIONS (4)
  - ARRHYTHMIA [None]
  - BACK PAIN [None]
  - DYSPNOEA [None]
  - MUSCLE SPASMS [None]
